FAERS Safety Report 5603702-4 (Version None)
Quarter: 2008Q1

REPORT INFORMATION
  Report Type: 
  Country: None (occurrence: None)
  Receive Date: 20080128
  Receipt Date: 20071113
  Transmission Date: 20080703
  Serious: No
  Sender: FDA-Public Use
  Company Number: US-BAYER-US-2007-043158

PATIENT
  Age: 55 Year
  Sex: Female

DRUGS (8)
  1. ANGELIQ [Suspect]
     Indication: MENOPAUSAL SYMPTOMS PROPHYLAXIS
     Route: 048
     Dates: start: 20071001
  2. ANGELIQ [Suspect]
     Dates: start: 20071101
  3. DIOVAN [Concomitant]
     Dosage: UNIT DOSE: 160 MG
     Route: 048
  4. HYDROCHLOROTHIAZIDE [Concomitant]
     Dosage: UNIT DOSE: 50 MG
  5. ALLEGRA [Concomitant]
  6. MUCINEX [Concomitant]
  7. ZITHROMAX [Concomitant]
  8. EFFEXOR /USA/ [Concomitant]
     Indication: HOT FLUSH

REACTIONS (4)
  - INAPPROPRIATE SCHEDULE OF DRUG ADMINISTRATION [None]
  - LIBIDO DECREASED [None]
  - METRORRHAGIA [None]
  - NAUSEA [None]
